FAERS Safety Report 6866475-3 (Version None)
Quarter: 2010Q3

REPORT INFORMATION
  Report Type: 
  Country: None (occurrence: None)
  Receive Date: 20100722
  Receipt Date: 20100719
  Transmission Date: 20110219
  Serious: Yes (Hospitalization, Other)
  Sender: FDA-Public Use
  Company Number: TW-ROXANE LABORATORIES, INC.-2010-RO-00866RO

PATIENT
  Age: 59 Year
  Sex: Female

DRUGS (7)
  1. RISPERIDONE [Suspect]
     Indication: PSYCHOTIC DISORDER
     Dosage: 2 MG
  2. RISPERIDONE [Suspect]
     Dosage: 2 MG
  3. CARBAMAZEPINE [Suspect]
     Indication: EPILEPSY
     Dosage: 400 MG
  4. DIPHENYLHYDANTOIN [Suspect]
     Indication: EPILEPSY
     Dosage: 150 MG
  5. OLANZAPINE [Suspect]
     Indication: PSYCHOTIC DISORDER
     Dosage: 7.5 MG
  6. TRIHEXYPHENIDYL HCL [Suspect]
     Dosage: 8 MG
  7. AMANTADINE HCL [Suspect]
     Dosage: 200 MG

REACTIONS (3)
  - DYSTONIA [None]
  - MUSCLE RIGIDITY [None]
  - TARDIVE DYSKINESIA [None]
